FAERS Safety Report 6395727-9 (Version None)
Quarter: 2009Q4

REPORT INFORMATION
  Report Type: 
  Country: None (occurrence: None)
  Receive Date: 20091009
  Receipt Date: 20091001
  Transmission Date: 20100525
  Serious: Yes (Death, Other)
  Sender: FDA-Public Use
  Company Number: US-TYCO HEALTHCARE/MALLINCKRODT-T200901831

PATIENT
  Age: 35 Year
  Sex: Male

DRUGS (6)
  1. METHADONE HYDROCHLORIDE [Suspect]
     Dosage: TOOK 20 (10 MG) TABLETS ALL AT ONCE
     Route: 048
  2. METHADONE HYDROCHLORIDE [Suspect]
     Dosage: 10 MG, BID
     Route: 048
  3. ALCOHOL [Suspect]
  4. VENLAFAXINE [Suspect]
  5. SERTRALINE HCL [Suspect]
  6. TOPIRAMATE [Suspect]

REACTIONS (4)
  - ASPIRATION [None]
  - DRUG INTERACTION [None]
  - DRUG TOXICITY [None]
  - SEROTONIN SYNDROME [None]
